FAERS Safety Report 4957585-6 (Version None)
Quarter: 2006Q1

REPORT INFORMATION
  Report Type: 
  Country: None (occurrence: None)
  Receive Date: 20060324
  Receipt Date: 20060313
  Transmission Date: 20060701
  Serious: Yes (Hospitalization)
  Sender: FDA-Public Use
  Company Number: CLOF-10208

PATIENT
  Sex: 0

DRUGS (2)
  1. CLOLAR [Suspect]
     Dates: start: 20060201, end: 20060201
  2. CYCLOPHOSPHAMIDE [Suspect]
     Dates: start: 20060201, end: 20060201

REACTIONS (4)
  - CYTOKINE STORM [None]
  - FEBRILE NEUTROPENIA [None]
  - PLATELET COUNT DECREASED [None]
  - TUMOUR LYSIS SYNDROME [None]
